FAERS Safety Report 5491254-1 (Version None)
Quarter: 2007Q4

REPORT INFORMATION
  Report Type: 
  Country: None (occurrence: None)
  Receive Date: 20071019
  Receipt Date: 20071015
  Transmission Date: 20080405
  Serious: Yes (Other)
  Sender: FDA-Public Use
  Company Number: BR-MERCK-0710BRA00045

PATIENT
  Age: 59 Year
  Sex: Male

DRUGS (3)
  1. VYTORIN [Suspect]
     Indication: DYSLIPIDAEMIA
     Route: 048
     Dates: start: 20070101, end: 20070901
  2. HYDROCHLOROTHIAZIDE AND VALSARTAN [Concomitant]
     Indication: HYPERTENSION
     Route: 048
     Dates: end: 20070901
  3. GINSENG (UNSPECIFIED) AND MINERALS (UNSPECIFIED) AND VITAMINS (UNSPECI [Concomitant]
     Route: 048

REACTIONS (1)
  - HEPATOTOXICITY [None]
